FAERS Safety Report 17227187 (Version 2)
Quarter: 2020Q1

REPORT INFORMATION
  Report Type: Report from Study
  Country: CA (occurrence: CA)
  Receive Date: 20200103
  Receipt Date: 20200127
  Transmission Date: 20200409
  Serious: Yes (Other)
  Sender: FDA-Public Use
  Company Number: CA-ROCHE-2506811

PATIENT
  Sex: Female

DRUGS (3)
  1. BUCKLEY^S MIXTURE (AMMONIUM) [Concomitant]
     Active Substance: AMMONIUM CARBONATE\CAMPHOR\HERBALS\MENTHOL\POTASSIUM BICARBONATE
     Dosage: ONGOING NO
     Route: 065
  2. OCREVUS [Suspect]
     Active Substance: OCRELIZUMAB
     Indication: RELAPSING-REMITTING MULTIPLE SCLEROSIS
     Dosage: 300 MG AT DAY 0 AND 14, THEN 600 MG EVERY 6 MONTH ;ONGOING: YES
     Route: 042
     Dates: start: 20190109
  3. ADVIL [IBUPROFEN] [Concomitant]
     Active Substance: IBUPROFEN
     Dosage: ONGOING NO
     Route: 065

REACTIONS (6)
  - Rash erythematous [Unknown]
  - Chest discomfort [Not Recovered/Not Resolved]
  - Herpes zoster [Recovered/Resolved]
  - Rash papular [Unknown]
  - Memory impairment [Not Recovered/Not Resolved]
  - Malaise [Not Recovered/Not Resolved]
